FAERS Safety Report 8739498 (Version 2)
Quarter: 2012Q4

REPORT INFORMATION
  Report Type: 
  Country: US (occurrence: US)
  Receive Date: 20120823
  Receipt Date: 20120926
  Transmission Date: 20130627
  Serious: Yes (Other)
  Sender: FDA-Public Use
  Company Number: US-ROCHE-1061680

PATIENT
  Age: 14 Year
  Sex: Female
  Weight: 90.8 kg

DRUGS (2)
  1. ACCUTANE [Suspect]
     Indication: ACNE
     Route: 065
     Dates: start: 199812, end: 199902
  2. TYLENOL [Concomitant]

REACTIONS (7)
  - Crohn^s disease [Unknown]
  - Inflammatory bowel disease [Unknown]
  - Depression [Unknown]
  - Polyp [Unknown]
  - Anal fissure [Unknown]
  - Alopecia [Unknown]
  - Dysthymic disorder [Unknown]
